FAERS Safety Report 5959350-X (Version None)
Quarter: 2008Q4

REPORT INFORMATION
  Report Type: 
  Country: None (occurrence: None)
  Receive Date: 20081119
  Receipt Date: 20081119
  Transmission Date: 20090506
  Serious: Yes (Hospitalization)
  Sender: FDA-Public Use
  Company Number: None

PATIENT
  Age: 39 Year
  Sex: Female
  Weight: 54.4316 kg

DRUGS (2)
  1. CHANTIX [Suspect]
     Indication: TOBACCO USER
     Dosage: DAILY PO
     Route: 048
     Dates: start: 20070202, end: 20070215
  2. CHANTIX [Suspect]
     Indication: TOBACCO USER
     Dosage: DAILY PO
     Route: 048
     Dates: start: 20070801, end: 20070901

REACTIONS (1)
  - TYPE 1 DIABETES MELLITUS [None]
